FAERS Safety Report 5792429-4 (Version None)
Quarter: 2008Q2

REPORT INFORMATION
  Report Type: 
  Country: None (occurrence: None)
  Receive Date: 20080625
  Receipt Date: 20080409
  Transmission Date: 20081010
  Serious: Yes (Hospitalization)
  Sender: FDA-Public Use
  Company Number: US-WYE-H03542808

PATIENT
  Sex: Male

DRUGS (6)
  1. TORISEL [Suspect]
     Indication: MANTLE CELL LYMPHOMA
     Dosage: 20 MG 1X PER 1 DAY, INTRAVENOUS ; 25 MG 1X PER 1 WK, INTRAVENOUS
     Route: 042
     Dates: start: 20080310, end: 20080101
  2. TORISEL [Suspect]
     Indication: MANTLE CELL LYMPHOMA
     Dosage: 20 MG 1X PER 1 DAY, INTRAVENOUS ; 25 MG 1X PER 1 WK, INTRAVENOUS
     Route: 042
     Dates: start: 20080402
  3. SLO-MAG (MAGNESIUM CHLORIDE ANHYDROUS) [Concomitant]
  4. ALLOPURINOL [Concomitant]
  5. POTASSIUM CHLORIDE [Concomitant]
  6. MULTIVITAMINS (ASCORBIC ACID/ERGOCALCIFEROL/FOLIC ACID/NICOTINAMIDE/PA [Concomitant]

REACTIONS (1)
  - THROMBOCYTOPENIA [None]
